FAERS Safety Report 18451162 (Version 1)
Quarter: 2020Q4

REPORT INFORMATION
  Report Type: Spontaneous
  Country: TR (occurrence: TR)
  Receive Date: 20201102
  Receipt Date: 20201102
  Transmission Date: 20210114
  Serious: No
  Sender: FDA-Public Use
  Company Number: TR-TOLMAR, INC.-20TR023185

PATIENT
  Age: 21 Year
  Sex: Female

DRUGS (1)
  1. ELIGARD [Suspect]
     Active Substance: LEUPROLIDE ACETATE
     Indication: PRODUCT USED FOR UNKNOWN INDICATION
     Dosage: UNK
     Route: 065
     Dates: start: 20200925

REACTIONS (4)
  - Intercepted product preparation error [None]
  - Syringe issue [None]
  - Device leakage [None]
  - Occupational exposure to product [Unknown]

NARRATIVE: CASE EVENT DATE: 20200925
